FAERS Safety Report 20885107 (Version 2)
Quarter: 2022Q2

REPORT INFORMATION
  Report Type: Report from Study
  Country: US (occurrence: US)
  Receive Date: 20220527
  Receipt Date: 20220530
  Transmission Date: 20220721
  Serious: Yes (Death)
  Sender: FDA-Public Use
  Company Number: US-ABBVIE-22K-163-4413115-00

PATIENT
  Sex: Male

DRUGS (12)
  1. VENCLEXTA [Suspect]
     Active Substance: VENETOCLAX
     Indication: Myelodysplastic syndrome
     Dosage: TAKE 1 TABLET 100MG BY MOUTH ONCE A DAY AT THE SAME TIME
     Route: 048
  2. VENCLEXTA [Suspect]
     Active Substance: VENETOCLAX
     Indication: Malignant lymphoid neoplasm
  3. VENCLEXTA [Suspect]
     Active Substance: VENETOCLAX
     Indication: Plasma cell myeloma
  4. ZOVIRAX [Concomitant]
     Active Substance: ACYCLOVIR
     Indication: Product used for unknown indication
     Dosage: TAKE 1 TABLET 400MG TOTAL BY MOUTH TWICE DAILY
     Route: 048
  5. ZYLOPRIM [Concomitant]
     Active Substance: ALLOPURINOL
     Indication: Product used for unknown indication
     Dosage: TAKE 0.5 TABS 150MG TOTAL BY MOUTH ONCE A DAY
     Route: 048
  6. TUMS [Concomitant]
     Active Substance: CALCIUM CARBONATE
     Indication: Product used for unknown indication
     Dosage: TAKE 500MG BY MOUTH TWICE DAILY PATIENT TO TAKE 3 TIMES A DAY
     Route: 048
  7. DRISDOL [Concomitant]
     Active Substance: ERGOCALCIFEROL
     Indication: Product used for unknown indication
     Dosage: TAKE 50000 UNITS BY MOUTH EVERY 2 WEEKS TAKE 50000 ONE EVERY 2 WEEKS
     Route: 048
  8. FOLVITE [Concomitant]
     Active Substance: FOLIC ACID
     Indication: Product used for unknown indication
     Dosage: TAKE 1 TAB 1MG TOTAL BY MOUTH ONCE A DAY TAKE ONCE DAILY AFTER THE LARGEST MEAL OF THE DAY
     Route: 048
  9. MIRALAX [Concomitant]
     Active Substance: POLYETHYLENE GLYCOL 3350
     Indication: Product used for unknown indication
     Dosage: TAKE 3 TEASPOONS 17G TOTAL BY MOUTH ONCE PER DAY AS NEEDED
     Route: 048
  10. BACTRIM [Concomitant]
     Active Substance: SULFAMETHOXAZOLE\TRIMETHOPRIM
     Indication: Product used for unknown indication
     Dosage: TAKE 1 TABLET 800MG TOTAL BY MOUTH EVERY MONDAY, WEDNESDAY AND FRIDAY?TABLET-80-400MG
     Route: 048
  11. ZINCATE [Concomitant]
     Indication: Product used for unknown indication
     Dosage: TAKE 1 CAPSULE 220 MG TOTAL BY MOUTH EVERY MONDAY AND FRIDAY
     Route: 048
  12. PROVENTIL [Concomitant]
     Active Substance: ALBUTEROL
     Indication: Product used for unknown indication
     Dosage: NEBULIZATION- 2,5MG/3ML NEB SOLUTION?ONCE PRN
     Route: 045

REACTIONS (2)
  - Death [Fatal]
  - Off label use [Unknown]
